FAERS Safety Report 4405241-5 (Version None)
Quarter: 2004Q3

REPORT INFORMATION
  Report Type: 
  Country: None (occurrence: None)
  Receive Date: 20040722
  Receipt Date: 20040722
  Transmission Date: 20050211
  Serious: Yes (Hospitalization)
  Sender: FDA-Public Use
  Company Number: None

PATIENT
  Age: 64 Year
  Sex: Male
  Weight: 132.5 kg

DRUGS (9)
  1. UNASYN [Suspect]
  2. DEXAMETHASONE [Concomitant]
  3. HUMULIN R [Concomitant]
  4. POTASSIUM CHORIDE [Concomitant]
  5. GLIPIZIDE [Concomitant]
  6. FUROSEMIDE [Concomitant]
  7. ENALAPRIL MALEATE [Concomitant]
  8. ATENOLOL [Concomitant]
  9. ASPIRIN [Concomitant]

REACTIONS (2)
  - PRURITUS [None]
  - RASH [None]
